FAERS Safety Report 6348124-6 (Version None)
Quarter: 2009Q3

REPORT INFORMATION
  Report Type: 
  Country: None (occurrence: None)
  Receive Date: 20090910
  Receipt Date: 20090904
  Transmission Date: 20100115
  Serious: Yes (Hospitalization)
  Sender: FDA-Public Use
  Company Number: DE-AMGEN-UK362998

PATIENT
  Sex: Female

DRUGS (4)
  1. NEULASTA [Suspect]
     Indication: CHEMOTHERAPY
     Route: 065
  2. CYCLOPHOSPHAMIDE [Concomitant]
     Route: 065
  3. DOCETAXEL [Concomitant]
     Route: 065
  4. DOXORUBICIN HCL [Concomitant]
     Route: 065

REACTIONS (2)
  - DRUG EFFECT DELAYED [None]
  - NEUTROPHIL COUNT DECREASED [None]
